FAERS Safety Report 19901693 (Version 1)
Quarter: 2021Q3

REPORT INFORMATION
  Report Type: Spontaneous
  Country: US (occurrence: US)
  Receive Date: 20210930
  Receipt Date: 20210930
  Transmission Date: 20211014
  Serious: Yes (Life-Threatening, Hospitalization, Other)
  Sender: FDA-Public Use
  Company Number: US-SA-2021SA322593

PATIENT
  Age: 15 Year
  Sex: Male

DRUGS (11)
  1. ALPROLIX [Suspect]
     Active Substance: EFTRENONACOG ALFA
     Indication: FACTOR IX DEFICIENCY
     Dosage: 40 IU/KG
     Route: 042
     Dates: start: 20210304
  2. ALPROLIX [Suspect]
     Active Substance: EFTRENONACOG ALFA
     Indication: FACTOR IX DEFICIENCY
     Dosage: 40 IU/KG
     Route: 042
     Dates: start: 20210304
  3. TRANEXAMIC ACID. [Concomitant]
     Active Substance: TRANEXAMIC ACID
     Dosage: 1300 MG; TID
     Route: 065
  4. ALPROLIX [Suspect]
     Active Substance: EFTRENONACOG ALFA
     Dosage: 44 IU
     Dates: start: 20210313
  5. ALPROLIX [Suspect]
     Active Substance: EFTRENONACOG ALFA
     Dosage: 44 IU/KG
     Route: 065
     Dates: start: 20210314
  6. BENEFIX [Suspect]
     Active Substance: COAGULATION FACTOR IX RECOMBINANT HUMAN\ISOPROPYL ALCOHOL
     Dosage: 100 IU; UNK
     Route: 065
     Dates: start: 20210315
  7. ALPROLIX [Suspect]
     Active Substance: EFTRENONACOG ALFA
     Indication: VON WILLEBRAND^S DISEASE
     Dosage: 50 IU/KG
     Route: 040
     Dates: start: 20210307
  8. ALPROLIX [Suspect]
     Active Substance: EFTRENONACOG ALFA
     Dosage: 44 IU
     Dates: start: 20210313
  9. ALPROLIX [Suspect]
     Active Substance: EFTRENONACOG ALFA
     Dosage: 44 IU/KG
     Route: 065
     Dates: start: 20210314
  10. ALPROLIX [Suspect]
     Active Substance: EFTRENONACOG ALFA
     Indication: VON WILLEBRAND^S DISEASE
     Dosage: 50 IU/KG
     Route: 040
     Dates: start: 20210307
  11. HEMOSTATIC [Concomitant]
     Dosage: UNK
     Route: 065

REACTIONS (11)
  - Tongue pruritus [Unknown]
  - Tonsillar haemorrhage [Unknown]
  - Dysphagia [Unknown]
  - Thrombosis [Unknown]
  - Haemorrhage [Unknown]
  - Tongue oedema [Unknown]
  - Pharyngeal swelling [Unknown]
  - Stridor [Unknown]
  - Swollen tongue [Unknown]
  - Angioedema [Unknown]
  - Palatal oedema [Unknown]

NARRATIVE: CASE EVENT DATE: 20210309
